FAERS Safety Report 4501693-0 (Version None)
Quarter: 2004Q4

REPORT INFORMATION
  Report Type: 
  Country: None (occurrence: None)
  Receive Date: 20041115
  Receipt Date: 20041115
  Transmission Date: 20050328
  Serious: Yes (Hospitalization)
  Sender: FDA-Public Use
  Company Number: None

PATIENT
  Age: 77 Year
  Sex: Male
  Weight: 80 kg

DRUGS (4)
  1. MONOPRIL [Suspect]
     Dosage: 20 MG QD
  2. GEMFIBROZIL [Concomitant]
  3. PROSCAR [Concomitant]
  4. ACE INHIBITORS [Concomitant]

REACTIONS (1)
  - PANCREATITIS [None]
